FAERS Safety Report 15687927 (Version 1)
Quarter: 2018Q4

REPORT INFORMATION
  Report Type: Spontaneous
  Country: US (occurrence: US)
  Receive Date: 20181205
  Receipt Date: 20181205
  Transmission Date: 20190205
  Serious: No
  Sender: FDA-Public Use
  Company Number: US-ROCHE-2062592

PATIENT
  Sex: Female

DRUGS (25)
  1. FISH OIL [Concomitant]
     Active Substance: FISH OIL
     Dosage: DAILY
     Route: 048
  2. LIPITOR [Concomitant]
     Active Substance: ATORVASTATIN CALCIUM
     Dosage: TAKE 1 TABLET AT BEDTIME
     Route: 048
  3. SYMBICORT [Concomitant]
     Active Substance: BUDESONIDE\FORMOTEROL FUMARATE DIHYDRATE
     Dosage: 2 PUFFS TWICE A DAY; 160-4.5MCG/ACT
     Route: 065
  4. OSCAL D [Concomitant]
     Active Substance: CALCIUM CARBONATE\CHOLECALCIFEROL
     Dosage: DAILY
     Route: 048
  5. NORCO [Concomitant]
     Active Substance: ACETAMINOPHEN\HYDROCODONE BITARTRATE
     Dosage: 10-325MG
     Route: 048
  6. MELATONIN [Concomitant]
     Active Substance: MELATONIN
     Route: 048
  7. VALIUM [Suspect]
     Active Substance: DIAZEPAM
     Indication: PRODUCT USED FOR UNKNOWN INDICATION
     Route: 065
  8. B COMPLEX VITAMIN [Concomitant]
     Route: 048
  9. LIDODERM [Concomitant]
     Active Substance: LIDOCAINE
     Route: 062
  10. RANEXA [Concomitant]
     Active Substance: RANOLAZINE
     Route: 048
  11. TRIAMCINOLONE ACETONIDE. [Concomitant]
     Active Substance: TRIAMCINOLONE ACETONIDE
     Dosage: 60MCG/ACT; 2 SPRAYS INTO EACH NOSTRIL DAILY
     Route: 045
  12. VENTOLIN HFA [Concomitant]
     Active Substance: ALBUTEROL SULFATE
     Indication: WHEEZING
     Dosage: 2 PUFFS EVERY 6 HOURS; 108MCG/ACT
     Route: 065
  13. URECHOLINE [Concomitant]
     Active Substance: BETHANECHOL CHLORIDE
     Route: 048
  14. ESTRACE (UNITED STATES) [Concomitant]
     Dosage: 0.1MG/GM; DAILY
     Route: 065
  15. LIORESAL [Concomitant]
     Active Substance: BACLOFEN
     Indication: MUSCLE SPASMS
     Route: 048
  16. PLAVIX [Concomitant]
     Active Substance: CLOPIDOGREL BISULFATE
     Route: 048
  17. UBIQUINONE [Concomitant]
     Active Substance: UBIDECARENONE
     Route: 048
  18. DOCUSATE SODIUM. [Concomitant]
     Active Substance: DOCUSATE SODIUM
     Route: 048
  19. REGLAN [Concomitant]
     Active Substance: METOCLOPRAMIDE HYDROCHLORIDE
     Dosage: 1 TABLET 30MIN BEFORE MEALS AND 1 AT BEDTIME
     Route: 048
  20. NITROLINGUAL [Concomitant]
     Active Substance: NITROGLYCERIN
     Indication: CHEST PAIN
     Dosage: UNDER THE TOUNGE EVERY 5 MIN AS NEEDED
     Route: 065
  21. LYRICA [Concomitant]
     Active Substance: PREGABALIN
     Dosage: FOR 14DAYS
     Route: 048
  22. ASPIRIN. [Concomitant]
     Active Substance: ASPIRIN
     Dosage: DAILY
     Route: 048
  23. IMDUR [Concomitant]
     Active Substance: ISOSORBIDE MONONITRATE
     Route: 048
  24. ZYRTEC [Concomitant]
     Active Substance: CETIRIZINE HYDROCHLORIDE
     Dosage: DAILY
     Route: 048
  25. PROLIA [Concomitant]
     Active Substance: DENOSUMAB
     Dosage: 60MG/ML
     Route: 065

REACTIONS (1)
  - Pruritus [Unknown]
